FAERS Safety Report 19000163 (Version 8)
Quarter: 2024Q1

REPORT INFORMATION
  Report Type: Report from Study
  Country: JP (occurrence: JP)
  Receive Date: 20210312
  Receipt Date: 20240208
  Transmission Date: 20240409
  Serious: Yes (Hospitalization, Other)
  Sender: FDA-Public Use
  Company Number: JP-KYOWAKIRIN-2021AKK003248

PATIENT

DRUGS (20)
  1. BUROSUMAB [Suspect]
     Active Substance: BUROSUMAB
     Indication: Albright^s disease
     Dosage: 10 MG, 1X/2 WEEKS
     Route: 058
     Dates: start: 20200410, end: 20201009
  2. BUROSUMAB [Suspect]
     Active Substance: BUROSUMAB
     Indication: Fibrous dysplasia of bone
     Dosage: 10 MG
     Route: 058
     Dates: start: 20201030, end: 20201030
  3. BUROSUMAB [Suspect]
     Active Substance: BUROSUMAB
     Dosage: 10 MG, 1X/2 WEEKS
     Route: 058
     Dates: start: 20201117, end: 20201201
  4. BUROSUMAB [Suspect]
     Active Substance: BUROSUMAB
     Dosage: 10 MG
     Route: 058
     Dates: start: 20201222, end: 20201222
  5. BUROSUMAB [Suspect]
     Active Substance: BUROSUMAB
     Dosage: 10 MG, 1X/2 WEEKS
     Route: 058
     Dates: start: 20210114, end: 20210128
  6. BUROSUMAB [Suspect]
     Active Substance: BUROSUMAB
     Dosage: 10 MG
     Route: 058
     Dates: start: 20210225, end: 20210225
  7. LETROZOLE [Concomitant]
     Active Substance: LETROZOLE
     Indication: Product used for unknown indication
     Dosage: UNK
     Route: 048
  8. EPINASTINE HYDROCHLORIDE [Concomitant]
     Active Substance: EPINASTINE HYDROCHLORIDE
     Indication: Conjunctivitis allergic
     Dosage: UNK
     Route: 047
  9. RINDERON A [Concomitant]
     Active Substance: BETAMETHASONE SODIUM PHOSPHATE\NEOMYCIN SULFATE
     Indication: Conjunctivitis allergic
     Dosage: UNK
     Route: 047
  10. CARBOCYSTEINE [Concomitant]
     Active Substance: CARBOCYSTEINE
     Indication: Upper respiratory tract inflammation
     Dosage: UNK
     Route: 048
  11. ASVERIN (TIPEPIDINE HIBENZATE) [Concomitant]
     Active Substance: TIPEPIDINE HIBENZATE
     Indication: Upper respiratory tract inflammation
     Dosage: UNK
     Route: 048
  12. PRANLUKAST [Concomitant]
     Active Substance: PRANLUKAST
     Indication: Asthma
     Dosage: UNK
     Route: 048
  13. LOCOID [Concomitant]
     Active Substance: HYDROCORTISONE BUTYRATE
     Indication: Dermatitis
     Dosage: UNK
     Route: 061
  14. PETROLATUM [Concomitant]
     Active Substance: PETROLATUM
     Indication: Dermatitis
     Dosage: UNK
     Route: 061
  15. THIOPENTAL [Concomitant]
     Active Substance: THIOPENTAL
     Indication: Product used for unknown indication
     Dosage: UNK
     Route: 065
  16. TRICLOFOS SODIUM [Concomitant]
     Active Substance: TRICLOFOS SODIUM
     Indication: Meniscus injury
     Dosage: UNK
     Route: 048
  17. HYDROXYZINE PAMOATE [Concomitant]
     Active Substance: HYDROXYZINE PAMOATE
     Indication: Meniscus injury
     Dosage: UNK
     Route: 048
  18. ATROPINE SULFATE [Concomitant]
     Active Substance: ATROPINE SULFATE
     Indication: Meniscus injury
     Dosage: UNK
     Route: 048
  19. ACETAMINOPHEN [Concomitant]
     Active Substance: ACETAMINOPHEN
     Indication: Meniscus injury
     Dosage: UNK
     Route: 054
  20. XYZAL [Concomitant]
     Active Substance: LEVOCETIRIZINE DIHYDROCHLORIDE
     Indication: Rhinitis allergic
     Dosage: UNK
     Route: 048

REACTIONS (11)
  - Meniscus injury [Recovered/Resolved]
  - Fibrous dysplasia of bone [Not Recovered/Not Resolved]
  - Conjunctivitis allergic [Recovered/Resolved]
  - Upper respiratory tract inflammation [Recovered/Resolved]
  - Asthma [Recovered/Resolved]
  - Rhinitis allergic [Recovered/Resolved]
  - Dermatitis [Recovered/Resolved]
  - Hyperparathyroidism secondary [Not Recovered/Not Resolved]
  - Product use in unapproved indication [Not Recovered/Not Resolved]
  - Drug ineffective [Unknown]
  - Off label use [Unknown]

NARRATIVE: CASE EVENT DATE: 20200410
